FAERS Safety Report 8890141 (Version 1)
Quarter: 2012Q4

REPORT INFORMATION
  Report Type: Spontaneous
  Country: US (occurrence: None)
  Receive Date: 20121105
  Receipt Date: 20121105
  Transmission Date: 20130627
  Serious: Yes (Life-Threatening)
  Sender: FDA-Public Use
  Company Number: None

PATIENT
  Sex: Female
  Weight: 104.33 kg

DRUGS (1)
  1. HYDROXYZINE [Suspect]
     Indication: MULTIPLE ALLERGIES
     Dosage: one tablet 4 times a day po
     Route: 048
     Dates: start: 20121021, end: 20121021

REACTIONS (2)
  - Anaphylactic reaction [None]
  - Product substitution issue [None]
